FAERS Safety Report 7978410-5 (Version None)
Quarter: 2011Q4

REPORT INFORMATION
  Report Type: 
  Country: None (occurrence: None)
  Receive Date: 20111205
  Receipt Date: 20111130
  Transmission Date: 20120403
  Serious: Yes (Death)
  Sender: FDA-Public Use
  Company Number: 2011SP056103

PATIENT
  Sex: Female

DRUGS (2)
  1. OXAZEPAM [Suspect]
     Indication: ANXIETY
     Dosage: 15 MG;;PO
     Route: 048
  2. SAPHRIS [Suspect]
     Indication: BIPOLAR I DISORDER
     Dosage: 10 MG;;PO
     Route: 048
     Dates: start: 20111031, end: 20111125

REACTIONS (1)
  - DEATH [None]
